FAERS Safety Report 9951105 (Version 1)
Quarter: 2014Q1

REPORT INFORMATION
  Report Type: Spontaneous
  Country: GB (occurrence: GB)
  Receive Date: 20140304
  Receipt Date: 20140304
  Transmission Date: 20141002
  Serious: Yes (Other)
  Sender: FDA-Public Use
  Company Number: PHFR2014GB001769

PATIENT
  Sex: 0

DRUGS (6)
  1. EVEROLIMUS [Suspect]
     Indication: BREAST CANCER
     Dosage: 10 MG, QD
     Route: 048
  2. EVEROLIMUS [Suspect]
     Dosage: 5 MG, QD
     Route: 048
  3. EVEROLIMUS [Suspect]
     Dosage: 5 MG, QD
     Route: 048
  4. EXEMESTANE [Suspect]
     Indication: BREAST CANCER
     Route: 048
  5. EXEMESTANE [Suspect]
     Route: 048
  6. EXEMESTANE [Suspect]
     Route: 048

REACTIONS (10)
  - Ascites [Unknown]
  - Muscle spasms [Unknown]
  - Mouth ulceration [Unknown]
  - Diarrhoea [Recovered/Resolved]
  - Headache [Unknown]
  - Viral infection [Unknown]
  - Malaise [Unknown]
  - Weight decreased [Unknown]
  - Fatigue [Unknown]
  - Abdominal discomfort [Unknown]
